FAERS Safety Report 21212485 (Version 1)
Quarter: 2022Q3

REPORT INFORMATION
  Report Type: Spontaneous
  Country: US (occurrence: None)
  Receive Date: 20220812
  Receipt Date: 20220812
  Transmission Date: 20221026
  Serious: Yes (Disabling)
  Sender: FDA-Public Use
  Company Number: None

PATIENT
  Age: 85 Year
  Sex: Male
  Weight: 87.75 kg

DRUGS (9)
  1. PREDNISOLONE [Suspect]
     Active Substance: PREDNISOLONE
  2. AMLODIPINE [Concomitant]
     Active Substance: AMLODIPINE BESYLATE
  3. VALSARTAN [Concomitant]
     Active Substance: VALSARTAN
  4. HYDROCHLOROTHIAZIDE [Concomitant]
     Active Substance: HYDROCHLOROTHIAZIDE
  5. ZOLPIDEM [Concomitant]
     Active Substance: ZOLPIDEM TARTRATE
  6. METOPROLOL [Concomitant]
     Active Substance: METOPROLOL
  7. TRAVATAN [Concomitant]
     Active Substance: TRAVOPROST
  8. TIMOLOL [Concomitant]
     Active Substance: TIMOLOL
  9. TYLENOL [Concomitant]
     Active Substance: ACETAMINOPHEN

REACTIONS (5)
  - Photophobia [None]
  - Vision blurred [None]
  - Eye pain [None]
  - Vitreous floaters [None]
  - Blepharitis [None]

NARRATIVE: CASE EVENT DATE: 20220701
